FAERS Safety Report 10626463 (Version 2)
Quarter: 2014Q4

REPORT INFORMATION
  Report Type: Spontaneous
  Country: IT (occurrence: IT)
  Receive Date: 20141204
  Receipt Date: 20141211
  Transmission Date: 20150529
  Serious: Yes (Other)
  Sender: FDA-Public Use
  Company Number: IT-TEVA-525901ISR

PATIENT
  Age: 23 Year
  Sex: Male

DRUGS (11)
  1. FENTANYL. [Suspect]
     Active Substance: FENTANYL
     Dosage: 75MCG/H
     Route: 062
  2. CODEINE [Concomitant]
     Active Substance: CODEINE
     Indication: PAIN
     Route: 065
  3. FENTANYL. [Suspect]
     Active Substance: FENTANYL
     Indication: PAIN
     Dosage: 25MCG/H THEN INCREASED TO 75MCG/H
     Route: 062
  4. CISPLATIN. [Suspect]
     Active Substance: CISPLATIN
     Indication: UNDIFFERENTIATED NASOPHARYNGEAL CARCINOMA
     Route: 065
  5. MORPHINE [Concomitant]
     Active Substance: MORPHINE
     Indication: PAIN
     Route: 048
  6. DOCETAXEL. [Suspect]
     Active Substance: DOCETAXEL
     Indication: UNDIFFERENTIATED NASOPHARYNGEAL CARCINOMA
     Route: 065
  7. FENTANYL. [Suspect]
     Active Substance: FENTANYL
     Indication: BREAKTHROUGH PAIN
     Dosage: 100MCG GRADUALLY INCREASED TO 400MCG
     Route: 045
  8. FLUOROURACIL. [Suspect]
     Active Substance: FLUOROURACIL
     Indication: UNDIFFERENTIATED NASOPHARYNGEAL CARCINOMA
     Route: 065
  9. FENTANYL. [Suspect]
     Active Substance: FENTANYL
     Dosage: 100MCG GRADUALLY INCREASED TO 400MCG
     Route: 045
  10. PARACETAMOL [Concomitant]
     Active Substance: ACETAMINOPHEN
     Indication: PAIN
     Route: 065
  11. CISPLATIN. [Suspect]
     Active Substance: CISPLATIN
     Dosage: 3 CYCLES EVERY 3 WEEKS
     Route: 065

REACTIONS (3)
  - Lung infection [Unknown]
  - Coma [Recovering/Resolving]
  - Drug abuse [Unknown]
